FAERS Safety Report 6048623-0 (Version None)
Quarter: 2009Q1

REPORT INFORMATION
  Report Type: 
  Country: None (occurrence: None)
  Receive Date: 20090123
  Receipt Date: 20090115
  Transmission Date: 20090719
  Serious: Yes (Death, Hospitalization)
  Sender: FDA-Public Use
  Company Number: FR-AVENTIS-200910095FR

PATIENT
  Age: 65 Year
  Sex: Female

DRUGS (42)
  1. RIFATER [Suspect]
     Route: 048
     Dates: start: 20080717, end: 20080725
  2. RIFATER [Suspect]
     Route: 048
     Dates: start: 20080820, end: 20080910
  3. MYAMBUTOL [Suspect]
     Route: 048
     Dates: start: 20080717, end: 20080910
  4. MYAMBUTOL [Suspect]
     Dates: start: 20081104, end: 20081105
  5. MYAMBUTOL [Suspect]
     Dates: start: 20081110, end: 20081124
  6. BACTRIM [Concomitant]
     Indication: DRUG USE FOR UNKNOWN INDICATION
     Route: 048
     Dates: start: 20080714, end: 20080715
  7. BACTRIM [Concomitant]
     Route: 048
     Dates: start: 20080819, end: 20080910
  8. LAROXYL [Concomitant]
     Indication: DRUG USE FOR UNKNOWN INDICATION
     Route: 048
     Dates: start: 20080714, end: 20080902
  9. IMOVANE [Concomitant]
     Indication: DRUG USE FOR UNKNOWN INDICATION
     Route: 048
     Dates: start: 20080714, end: 20080903
  10. DOLIPRANE 500 MG [Concomitant]
     Indication: DRUG USE FOR UNKNOWN INDICATION
     Route: 048
     Dates: start: 20080718, end: 20080902
  11. NEURONTIN [Concomitant]
     Indication: DRUG USE FOR UNKNOWN INDICATION
     Route: 048
     Dates: start: 20080724, end: 20080903
  12. ULCAR                              /00434701/ [Concomitant]
     Indication: DRUG USE FOR UNKNOWN INDICATION
     Route: 048
     Dates: start: 20080807, end: 20080902
  13. AERIUS                             /01398501/ [Concomitant]
     Indication: DRUG USE FOR UNKNOWN INDICATION
     Route: 048
     Dates: start: 20080816, end: 20080902
  14. AERIUS                             /01398501/ [Concomitant]
     Route: 048
     Dates: start: 20081104
  15. MOTILYO [Concomitant]
     Indication: DRUG USE FOR UNKNOWN INDICATION
     Route: 048
     Dates: start: 20080818, end: 20080902
  16. SPASFON                            /00934601/ [Concomitant]
     Indication: DRUG USE FOR UNKNOWN INDICATION
     Route: 048
     Dates: start: 20080818, end: 20080906
  17. FUNGIZONE [Concomitant]
     Indication: DRUG USE FOR UNKNOWN INDICATION
     Route: 048
     Dates: start: 20080816, end: 20080902
  18. FUNGIZONE [Concomitant]
     Route: 048
     Dates: start: 20080915
  19. FLUCONAZOLE [Concomitant]
     Indication: DRUG USE FOR UNKNOWN INDICATION
     Dates: start: 20080714, end: 20080715
  20. FLUCONAZOLE [Concomitant]
     Dates: start: 20080805, end: 20080902
  21. INIPOMP                            /01263201/ [Concomitant]
     Indication: DRUG USE FOR UNKNOWN INDICATION
     Dates: start: 20080714
  22. TRAMADOL HCL [Concomitant]
     Indication: DRUG USE FOR UNKNOWN INDICATION
     Route: 042
     Dates: start: 20080714
  23. PERFALGAN [Concomitant]
     Indication: DRUG USE FOR UNKNOWN INDICATION
     Dates: start: 20080714, end: 20080718
  24. PERFALGAN [Concomitant]
     Dates: start: 20080905, end: 20080910
  25. CALCIUM [Concomitant]
     Indication: DRUG USE FOR UNKNOWN INDICATION
     Dates: start: 20080715, end: 20080903
  26. VITAMIN B1 AND B6 [Concomitant]
     Indication: DRUG USE FOR UNKNOWN INDICATION
     Dates: start: 20080717, end: 20080911
  27. GAVISCON [Concomitant]
     Indication: DRUG USE FOR UNKNOWN INDICATION
     Dates: start: 20080723, end: 20080817
  28. GAVISCON [Concomitant]
     Dates: start: 20081029
  29. RIMACTAN                           /00146901/ [Concomitant]
     Indication: DRUG USE FOR UNKNOWN INDICATION
     Dates: start: 20080725, end: 20080820
  30. PIRILENE [Concomitant]
     Indication: DRUG USE FOR UNKNOWN INDICATION
     Route: 048
     Dates: start: 20080725, end: 20080820
  31. ACTRAPID [Concomitant]
     Indication: DRUG USE FOR UNKNOWN INDICATION
     Dates: start: 20080805, end: 20080816
  32. PRIMPERAN                          /00041901/ [Concomitant]
     Indication: DRUG USE FOR UNKNOWN INDICATION
     Route: 042
     Dates: start: 20080806, end: 20080816
  33. PRIMPERAN                          /00041901/ [Concomitant]
     Route: 042
     Dates: start: 20080905
  34. ATARAX [Concomitant]
     Indication: DRUG USE FOR UNKNOWN INDICATION
     Route: 048
     Dates: start: 20080816, end: 20080916
  35. ATARAX [Concomitant]
     Route: 042
     Dates: start: 20081107
  36. FORLAX [Concomitant]
     Indication: DRUG USE FOR UNKNOWN INDICATION
     Dates: start: 20080820, end: 20080903
  37. LOVENOX [Concomitant]
     Indication: DRUG USE FOR UNKNOWN INDICATION
     Route: 058
     Dates: start: 20080714, end: 20080820
  38. RIVOTRIL [Concomitant]
     Indication: DRUG USE FOR UNKNOWN INDICATION
     Route: 058
     Dates: start: 20080722, end: 20080816
  39. AMIKLIN                            /00391001/ [Concomitant]
     Dates: start: 20081104
  40. OFLOCET                            /00731801/ [Concomitant]
     Dates: start: 20081104
  41. FUZEON [Concomitant]
  42. COMBIVIR [Concomitant]
     Dates: start: 20081118

REACTIONS (3)
  - DRUG RASH WITH EOSINOPHILIA AND SYSTEMIC SYMPTOMS [None]
  - MULTI-ORGAN FAILURE [None]
  - RASH MACULO-PAPULAR [None]
